FAERS Safety Report 6387761-X (Version None)
Quarter: 2009Q4

REPORT INFORMATION
  Report Type: 
  Country: None (occurrence: None)
  Receive Date: 20091005
  Receipt Date: 20090927
  Transmission Date: 20100525
  Serious: Yes (Other)
  Sender: FDA-Public Use
  Company Number: CN-ROCHE-655609

PATIENT
  Age: 74 Year
  Sex: Male
  Weight: 70 kg

DRUGS (3)
  1. XELODA [Suspect]
     Indication: RECTAL CANCER
     Route: 048
     Dates: start: 20090510, end: 20090524
  2. XELODA [Suspect]
     Route: 048
     Dates: start: 20090803, end: 20090817
  3. XELODA [Suspect]
     Route: 048
     Dates: start: 20090824, end: 20090909

REACTIONS (1)
  - GASTROENTERITIS RADIATION [None]
